FAERS Safety Report 4897667-0 (Version None)
Quarter: 2006Q1

REPORT INFORMATION
  Report Type: 
  Country: None (occurrence: None)
  Receive Date: 20060130
  Receipt Date: 20060121
  Transmission Date: 20060701
  Serious: Yes (Other)
  Sender: FDA-Public Use
  Company Number: 2005138773

PATIENT
  Age: 69 Year
  Sex: Female

DRUGS (9)
  1. NEURONTIN [Suspect]
     Indication: POST HERPETIC NEURALGIA
     Dosage: 1600 MG (400 MG, 4 IN 1 D), UNKNOWN
     Route: 065
     Dates: start: 20040915
  2. DIOVAN ^CIBA-GEIGY^ (VALSARTAN) [Concomitant]
  3. ATENOLOL [Concomitant]
  4. FLOVENT [Concomitant]
  5. AMBIEN [Concomitant]
  6. VITAMIN C (VITAMIN C) [Concomitant]
  7. CALCIUM (CALCIUM) [Concomitant]
  8. EVISTA [Concomitant]
  9. HYOSCYAMINE (HYOSCYAMINE) [Concomitant]

REACTIONS (3)
  - BLOOD TEST ABNORMAL [None]
  - GAMMOPATHY [None]
  - PROTEIN TOTAL INCREASED [None]
